FAERS Safety Report 12932911 (Version 1)
Quarter: 2016Q4

REPORT INFORMATION
  Report Type: Report from Study
  Country: US (occurrence: US)
  Receive Date: 20161111
  Receipt Date: 20161111
  Transmission Date: 20170207
  Serious: Yes (Hospitalization, Other)
  Sender: FDA-Public Use
  Company Number: US-BAYER-2016-196206

PATIENT
  Age: 72 Year
  Sex: Male
  Weight: 73.89 kg

DRUGS (3)
  1. XOFIGO [Suspect]
     Active Substance: RADIUM RA-223 DICHLORIDE
     Indication: PROSTATE CANCER STAGE IV
     Dosage: 102 ?CI, ONCE EVERY 28 DAYS
     Route: 042
     Dates: start: 20160712, end: 20160712
  2. XOFIGO [Suspect]
     Active Substance: RADIUM RA-223 DICHLORIDE
     Indication: METASTASES TO BONE
     Dosage: 101 ?CI, ONCE EVERY 28 DAYS
     Route: 042
     Dates: start: 20160809, end: 20160809
  3. XOFIGO [Suspect]
     Active Substance: RADIUM RA-223 DICHLORIDE
     Indication: PROSTATE CANCER STAGE IV
     Dosage: 106 ?CI, ONCE EVERY 28 DAYS
     Route: 042
     Dates: start: 20160907, end: 20160907

REACTIONS (24)
  - Fibrin D dimer increased [None]
  - Cytopenia [None]
  - Nausea [Recovered/Resolved]
  - Blood count abnormal [None]
  - White blood cell count decreased [None]
  - Platelet count decreased [None]
  - Platelet count decreased [None]
  - Vomiting [Recovered/Resolved]
  - Fatigue [None]
  - Pain [Recovering/Resolving]
  - Platelet count decreased [None]
  - Malaise [None]
  - Platelet count decreased [None]
  - Prostatic specific antigen increased [None]
  - Prostatic specific antigen increased [None]
  - Fatigue [None]
  - Neoplasm malignant [None]
  - Neoplasm progression [None]
  - Haemoglobin decreased [None]
  - Haemoglobin decreased [None]
  - Supportive care [None]
  - Prostatic specific antigen increased [None]
  - Haemoglobin decreased [None]
  - Prostatic specific antigen increased [None]

NARRATIVE: CASE EVENT DATE: 20160726
